FAERS Safety Report 13677732 (Version 2)
Quarter: 2017Q3

REPORT INFORMATION
  Report Type: Spontaneous
  Country: JP (occurrence: JP)
  Receive Date: 20170622
  Receipt Date: 20170727
  Transmission Date: 20171127
  Serious: Yes (Life-Threatening, Hospitalization, Other)
  Sender: FDA-Public Use
  Company Number: JP-PFIZER INC-2017271285

PATIENT
  Age: 6 Decade
  Sex: Female

DRUGS (1)
  1. AMIODARONE HCL [Suspect]
     Active Substance: AMIODARONE HYDROCHLORIDE
     Dosage: UNK

REACTIONS (4)
  - Hyperthyroidism [Recovering/Resolving]
  - Congestive cardiomyopathy [Unknown]
  - Shock [Unknown]
  - Pulmonary hypertension [Recovering/Resolving]
